FAERS Safety Report 11252843 (Version 1)
Quarter: 2015Q3

REPORT INFORMATION
  Report Type: Spontaneous
  Country: US (occurrence: None)
  Receive Date: 20150708
  Receipt Date: 20150708
  Transmission Date: 20151125
  Serious: No
  Sender: FDA-Public Use
  Company Number: None

PATIENT
  Age: 57 Year
  Sex: Female

DRUGS (9)
  1. OMEPRAZOLE. [Concomitant]
     Active Substance: OMEPRAZOLE
  2. LORAZEPAM. [Concomitant]
     Active Substance: LORAZEPAM
  3. AMOXICILLIN. [Concomitant]
     Active Substance: AMOXICILLIN
  4. AFINITOR [Suspect]
     Active Substance: EVEROLIMUS
     Indication: BREAST CANCER
     Route: 048
     Dates: start: 20150611
  5. IBUPROFEN. [Concomitant]
     Active Substance: IBUPROFEN
  6. HYDROCO/APAP [Concomitant]
     Active Substance: ACETAMINOPHEN\HYDROCODONE
  7. VIRTUSSIN HYDROMORPHEN [Concomitant]
  8. MORPHINE SULF [Concomitant]
     Active Substance: MORPHINE SULFATE
  9. PENICILLIN [Concomitant]
     Active Substance: PENICILLIN

REACTIONS (1)
  - Decreased appetite [None]

NARRATIVE: CASE EVENT DATE: 201506
